FAERS Safety Report 5423650-2 (Version None)
Quarter: 2007Q3

REPORT INFORMATION
  Report Type: 
  Country: None (occurrence: None)
  Receive Date: 20070725
  Receipt Date: 20070201
  Transmission Date: 20080115
  Serious: Yes (Other)
  Sender: FDA-Public Use
  Company Number: US200612001096

PATIENT
  Age: 8 Year
  Sex: Male

DRUGS (3)
  1. STRATTERA [Suspect]
     Dosage: MG
  2. SINGULAIR [Concomitant]
  3. MULTIVITAMIN [Concomitant]

REACTIONS (1)
  - CONVULSION [None]
